FAERS Safety Report 9324532 (Version 4)
Quarter: 2014Q1

REPORT INFORMATION
  Report Type: Spontaneous
  Country: US (occurrence: US)
  Receive Date: 20130603
  Receipt Date: 20140306
  Transmission Date: 20141002
  Serious: Yes (Hospitalization)
  Sender: FDA-Public Use
  Company Number: US-B.I. PHARMACEUTICALS,INC./RIDGEFIELD-2013-BI-15150BP

PATIENT
  Age: 77 Year
  Sex: Male
  Weight: 83.01 kg

DRUGS (11)
  1. PRADAXA [Suspect]
     Indication: CEREBROVASCULAR ACCIDENT PROPHYLAXIS
     Dosage: 300 MG
     Route: 048
     Dates: start: 201101, end: 20120214
  2. PRADAXA [Suspect]
     Indication: THROMBOSIS PROPHYLAXIS
  3. PRENATAL [Concomitant]
     Route: 065
  4. AMARYL [Concomitant]
     Route: 065
  5. LASIX [Concomitant]
     Route: 065
  6. PREVACID [Concomitant]
     Route: 065
  7. ZESTRIL [Concomitant]
     Route: 065
  8. ARICEPT [Concomitant]
     Route: 065
  9. GLUCOPHAGE [Concomitant]
     Route: 065
  10. ZOCOR [Concomitant]
     Route: 065
  11. PLAVIX [Concomitant]
     Route: 065

REACTIONS (3)
  - Subarachnoid haemorrhage [Recovered/Resolved]
  - Gastrointestinal haemorrhage [Unknown]
  - Respiratory failure [Unknown]
